FAERS Safety Report 24528146 (Version 2)
Quarter: 2025Q1

REPORT INFORMATION
  Report Type: Spontaneous
  Country: JP (occurrence: JP)
  Receive Date: 20241021
  Receipt Date: 20250210
  Transmission Date: 20250409
  Serious: Yes (Hospitalization, Other)
  Sender: AMGEN
  Company Number: JP-DSJP-DS-2024-103005-

PATIENT
  Age: 69 Year
  Sex: Female

DRUGS (4)
  1. DENOSUMAB [Suspect]
     Active Substance: DENOSUMAB
     Indication: Metastases to bone
     Route: 065
     Dates: start: 2018
  2. DENOSUMAB [Suspect]
     Active Substance: DENOSUMAB
     Route: 065
  3. ANASTROZOLE [Concomitant]
     Active Substance: ANASTROZOLE
     Indication: Breast cancer
     Route: 048
     Dates: start: 2016
  4. FULVESTRANT [Concomitant]
     Active Substance: FULVESTRANT
     Indication: Metastases to bone
     Route: 065
     Dates: start: 2018

REACTIONS (2)
  - Spinal compression fracture [Recovering/Resolving]
  - Spinal compression fracture [Recovering/Resolving]
